FAERS Safety Report 6937401-3 (Version None)
Quarter: 2010Q3

REPORT INFORMATION
  Report Type: 
  Country: None (occurrence: None)
  Receive Date: 20100823
  Receipt Date: 20100812
  Transmission Date: 20110219
  Serious: Yes (Other)
  Sender: FDA-Public Use
  Company Number: US-AMGEN-QUU416229

PATIENT
  Sex: Female

DRUGS (2)
  1. ENBREL [Suspect]
     Indication: RHEUMATOID ARTHRITIS
     Route: 058
     Dates: start: 20080701, end: 20100331
  2. METHOTREXATE [Concomitant]
     Route: 048

REACTIONS (5)
  - EYE SWELLING [None]
  - RHEUMATOID ARTHRITIS [None]
  - SNEEZING [None]
  - THROAT IRRITATION [None]
  - THROAT TIGHTNESS [None]
